FAERS Safety Report 16092783 (Version 1)
Quarter: 2019Q1

REPORT INFORMATION
  Report Type: Spontaneous
  Country: US (occurrence: US)
  Receive Date: 20190320
  Receipt Date: 20190320
  Transmission Date: 20190418
  Serious: No
  Sender: FDA-Public Use
  Company Number: US-JNJFOC-20190225757

PATIENT
  Sex: Female
  Weight: 48.54 kg

DRUGS (2)
  1. WOMENS ROGAINE [Suspect]
     Active Substance: MINOXIDIL
     Route: 061
  2. WOMENS ROGAINE [Suspect]
     Active Substance: MINOXIDIL
     Indication: ALOPECIA
     Dosage: ONE DROP
     Route: 061

REACTIONS (3)
  - Pruritus [Recovered/Resolved]
  - Underdose [Unknown]
  - Skin burning sensation [Recovered/Resolved]
